FAERS Safety Report 17526548 (Version 1)
Quarter: 2020Q1

REPORT INFORMATION
  Report Type: Spontaneous
  Country: US (occurrence: US)
  Receive Date: 20200311
  Receipt Date: 20200311
  Transmission Date: 20200409
  Serious: Yes (Hospitalization)
  Sender: FDA-Public Use
  Company Number: None

PATIENT
  Age: 86 Year
  Sex: Female
  Weight: 82.1 kg

DRUGS (1)
  1. NINLARO [Suspect]
     Active Substance: IXAZOMIB CITRATE
     Dosage: ?          OTHER FREQUENCY:DAYS 1, 8,15 OF 28;?
     Route: 048

REACTIONS (4)
  - Chronic obstructive pulmonary disease [None]
  - Therapy cessation [None]
  - Pneumonia [None]
  - Cerebrovascular accident [None]
